FAERS Safety Report 18176040 (Version 1)
Quarter: 2020Q3

REPORT INFORMATION
  Report Type: Spontaneous
  Country: CN (occurrence: CN)
  Receive Date: 20200820
  Receipt Date: 20200820
  Transmission Date: 20201103
  Serious: Yes (Other)
  Sender: FDA-Public Use
  Company Number: CN-009507513-2008CHN009017

PATIENT
  Age: 58 Year
  Sex: Male
  Weight: 77 kg

DRUGS (5)
  1. PACLITAXEL. [Suspect]
     Active Substance: PACLITAXEL
     Indication: LUNG NEOPLASM MALIGNANT
     Dosage: 300 MG, QD, IVGTT
     Route: 041
     Dates: start: 20200411, end: 20200411
  2. KEYTRUDA [Suspect]
     Active Substance: PEMBROLIZUMAB
     Indication: LUNG NEOPLASM MALIGNANT
     Dosage: 200MG, QD,  IVGTT
     Route: 041
     Dates: start: 20200410, end: 20200410
  3. NEDAPLATIN [Suspect]
     Active Substance: NEDAPLATIN
     Indication: LUNG NEOPLASM MALIGNANT
     Dosage: 40 MG, QD, IVGTT
     Route: 041
     Dates: start: 20200412, end: 20200414
  4. DOCETAXEL. [Suspect]
     Active Substance: DOCETAXEL
     Dosage: UNK
  5. CISPLATIN. [Suspect]
     Active Substance: CISPLATIN
     Dosage: UNK

REACTIONS (3)
  - White blood cell count decreased [Unknown]
  - Myelosuppression [Unknown]
  - Gastrointestinal disorder [Unknown]

NARRATIVE: CASE EVENT DATE: 20200415
